FAERS Safety Report 8625441-8 (Version None)
Quarter: 2012Q3

REPORT INFORMATION
  Report Type: 
  Country: None (occurrence: None)
  Receive Date: 20120827
  Receipt Date: 20120821
  Transmission Date: 20120928
  Serious: Yes (Other)
  Sender: FDA-Public Use
  Company Number: CHPA2012US011034

PATIENT
  Sex: Female

DRUGS (1)
  1. GAS-X EXTRA STRENGTH SOFTGELS [Suspect]
     Indication: FLATULENCE
     Dosage: UNK, UNK
     Route: 048

REACTIONS (6)
  - SKIN DISCOLOURATION [None]
  - SCAR [None]
  - LICHEN PLANUS [None]
  - PRURITUS [None]
  - HYPERSENSITIVITY [None]
  - RASH [None]
